FAERS Safety Report 22682326 (Version 6)
Quarter: 2024Q4

REPORT INFORMATION
  Report Type: Report from Study
  Country: AU (occurrence: AU)
  Receive Date: 20230707
  Receipt Date: 20241202
  Transmission Date: 20250114
  Serious: Yes (Hospitalization)
  Sender: ABBVIE
  Company Number: AU-ABBVIE-5317014

PATIENT
  Age: 54 Year
  Sex: Female
  Weight: 74.3 kg

DRUGS (8)
  1. UPADACITINIB [Suspect]
     Active Substance: UPADACITINIB
     Indication: Dermatitis atopic
     Route: 048
     Dates: start: 20230501, end: 20230629
  2. UPADACITINIB [Suspect]
     Active Substance: UPADACITINIB
     Indication: Dermatitis atopic
     Route: 048
     Dates: start: 20230709
  3. FOSAMAX [Concomitant]
     Active Substance: ALENDRONATE SODIUM
     Indication: Osteopenia
     Route: 048
     Dates: start: 20220409
  4. BREO ELLIPTA [Concomitant]
     Active Substance: FLUTICASONE FUROATE\VILANTEROL TRIFENATATE
     Indication: Asthma
     Dosage: 100/25 UG
     Route: 055
     Dates: start: 202208
  5. DESVENLAFAXINE [Concomitant]
     Active Substance: DESVENLAFAXINE
     Indication: Depression
     Route: 048
     Dates: start: 202301
  6. PREDNISOLONE [Concomitant]
     Active Substance: PREDNISOLONE
     Indication: Asthma
     Route: 048
     Dates: start: 20230624, end: 20230626
  7. PREDNISOLONE [Concomitant]
     Active Substance: PREDNISOLONE
     Indication: Asthma
     Route: 048
     Dates: start: 20230627, end: 20230629
  8. ROXITHROMYCIN [Concomitant]
     Active Substance: ROXITHROMYCIN
     Indication: Asthma
     Route: 048
     Dates: start: 20230624, end: 20230628

REACTIONS (1)
  - Respiratory syncytial virus infection [Recovered/Resolved]

NARRATIVE: CASE EVENT DATE: 20230628
